FAERS Safety Report 14211617 (Version 1)
Quarter: 2017Q4

REPORT INFORMATION
  Report Type: Spontaneous
  Country: US (occurrence: US)
  Receive Date: 20171121
  Receipt Date: 20171121
  Transmission Date: 20180321
  Serious: Yes (Other)
  Sender: FDA-Public Use
  Company Number: US-MYLANLABS-2017M1073544

PATIENT
  Age: 34 Year
  Sex: Female

DRUGS (7)
  1. FENTANYL. [Suspect]
     Active Substance: FENTANYL
     Indication: CAESAREAN SECTION
  2. BUPIVACAINE. [Suspect]
     Active Substance: BUPIVACAINE
     Indication: SPINAL ANAESTHESIA
     Dosage: 13.5MG
     Route: 050
  3. MORPHINE [Suspect]
     Active Substance: MORPHINE
     Indication: SPINAL ANAESTHESIA
     Dosage: 0.1MG
     Route: 050
  4. BUPRENORPHINE. [Suspect]
     Active Substance: BUPRENORPHINE
     Indication: PRODUCT USED FOR UNKNOWN INDICATION
     Dosage: 4 MG EVERY OTHER DAY
     Route: 065
  5. BUPIVACAINE. [Suspect]
     Active Substance: BUPIVACAINE
     Indication: CAESAREAN SECTION
  6. MORPHINE [Suspect]
     Active Substance: MORPHINE
     Indication: CAESAREAN SECTION
  7. FENTANYL. [Suspect]
     Active Substance: FENTANYL
     Indication: SPINAL ANAESTHESIA
     Dosage: 25 MCG
     Route: 050

REACTIONS (4)
  - Maternal use of illicit drugs [Recovering/Resolving]
  - Maternal exposure during delivery [Recovered/Resolved]
  - Drug abuse [Recovering/Resolving]
  - Hyperaesthesia [Recovering/Resolving]
